FAERS Safety Report 8288132-1 (Version None)
Quarter: 2012Q2

REPORT INFORMATION
  Report Type: 
  Country: None (occurrence: None)
  Receive Date: 20120416
  Receipt Date: 20120406
  Transmission Date: 20120825
  Serious: Yes (Hospitalization)
  Sender: FDA-Public Use
  Company Number: US-BRISTOL-MYERS SQUIBB COMPANY-16507550

PATIENT
  Age: 61 Year
  Sex: Female

DRUGS (8)
  1. MYCOPHENOLATE MOFETIL (CELLCEPT) [Concomitant]
  2. LOPRESSOR [Concomitant]
  3. SIMVASTATIN [Concomitant]
  4. PREDNISONE TAB [Concomitant]
  5. PROGRAF [Concomitant]
  6. BARACLUDE [Suspect]
  7. LISINOPRIL [Concomitant]
  8. XANAX [Concomitant]

REACTIONS (1)
  - PNEUMONIA [None]
